FAERS Safety Report 6537168-7 (Version None)
Quarter: 2010Q1

REPORT INFORMATION
  Report Type: 
  Country: None (occurrence: None)
  Receive Date: 20100114
  Receipt Date: 20090929
  Transmission Date: 20100710
  Serious: Yes (Hospitalization)
  Sender: FDA-Public Use
  Company Number: DE-ELI_LILLY_AND_COMPANY-DE200909007005

PATIENT
  Age: 56 Year
  Sex: Male
  Weight: 100 kg

DRUGS (6)
  1. H7T-MC-TACW PH II INTENSIFIED ANTIPLATE [Suspect]
     Indication: ACUTE CORONARY SYNDROME
     Dosage: 10 MG, DAILY (1/D)
     Route: 048
     Dates: start: 20090916, end: 20090924
  2. ASPIRIN [Concomitant]
     Dosage: 100 MG, DAILY (1/D)
     Route: 065
     Dates: start: 20090916
  3. ASPIRIN [Concomitant]
     Dosage: UNK, DAILY (1/D)
     Route: 042
     Dates: start: 20090915, end: 20090915
  4. CLOPIDOGREL [Concomitant]
     Dosage: 600 MG, DAILY (1/D)
     Route: 048
     Dates: start: 20090915, end: 20090915
  5. CLOPIDOGREL [Concomitant]
     Dosage: 75 MG, DAILY (1/D)
     Route: 048
     Dates: start: 20090916
  6. SIMVASTATIN [Concomitant]
     Indication: PROPHYLAXIS
     Dosage: UNK, UNKNOWN
     Route: 065
     Dates: start: 20050501

REACTIONS (1)
  - ACUTE LYMPHOCYTIC LEUKAEMIA [None]
